FAERS Safety Report 9236779 (Version 1)
Quarter: 2013Q2

REPORT INFORMATION
  Report Type: Spontaneous
  Country: US (occurrence: None)
  Receive Date: 20130415
  Receipt Date: 20130415
  Transmission Date: 20140414
  Serious: Yes (Hospitalization)
  Sender: FDA-Public Use
  Company Number: FK201301081

PATIENT
  Age: 57 Year
  Sex: Female
  Weight: 45 kg

DRUGS (15)
  1. HEPARIN SODIUM [Suspect]
     Indication: PULMONARY EMBOLISM
     Dosage: 100 USP UNITS, AS REQUIRED
     Route: 041
     Dates: start: 20130215, end: 20130218
  2. PACLITAXEL (PACLITAXEL) [Suspect]
     Indication: OVARIAN CANCER
     Dosage: 110 MG, 1 IN 1 WK, INTRAVENOUS
     Route: 042
     Dates: start: 20130201, end: 20130215
  3. OSI-906 [Suspect]
     Indication: OVARIAN CANCER
     Dosage: 600 MG, INTERMITTANT
     Route: 048
     Dates: start: 20130201, end: 20130217
  4. PROCHLORPERAZINE [Concomitant]
  5. COMPAZINE (PROCHLORPERAZINE EDISYLATE) [Concomitant]
  6. FLAGYL (METRONIDAZOLE) [Concomitant]
  7. DECADRON (DEXAMETHASONE) [Concomitant]
  8. VITAMINS [Concomitant]
  9. MIRALAX [Concomitant]
  10. NEURONTIN (GABAPENTIN) [Concomitant]
  11. TYLENOL (PARACETAMOL) [Concomitant]
  12. SLOW FE (FERROUS SULFATE) [Concomitant]
  13. COLACE [Concomitant]
  14. ATIVAN (LORAZEPAM) [Concomitant]
  15. ZOFRAN (ONDANSETRON) [Concomitant]

REACTIONS (3)
  - Vaginal fistula [None]
  - Foot fracture [None]
  - Embolism [None]
